FAERS Safety Report 9973251 (Version 2)
Quarter: 2014Q1

REPORT INFORMATION
  Report Type: Report from Study
  Country: US (occurrence: US)
  Receive Date: 20140306
  Receipt Date: 20140306
  Transmission Date: 20141002
  Serious: No
  Sender: FDA-Public Use
  Company Number: US-ABBVIE-13P-163-1148961-00

PATIENT
  Age: 27 Year
  Sex: Female

DRUGS (3)
  1. HUMIRA [Suspect]
     Indication: CROHN^S DISEASE
     Route: 058
     Dates: start: 20130430
  2. HUMIRA [Suspect]
     Route: 058
     Dates: start: 20131008
  3. METHOTREXATE [Concomitant]
     Indication: PRODUCT USED FOR UNKNOWN INDICATION
     Dosage: ON WEDNESDAY ONLY

REACTIONS (5)
  - Rectal haemorrhage [Not Recovered/Not Resolved]
  - Pelvic pain [Not Recovered/Not Resolved]
  - Pelvic infection [Not Recovered/Not Resolved]
  - Diarrhoea [Not Recovered/Not Resolved]
  - Abdominal pain [Not Recovered/Not Resolved]
